FAERS Safety Report 17426111 (Version 1)
Quarter: 2020Q1

REPORT INFORMATION
  Report Type: Spontaneous
  Country: FR (occurrence: FR)
  Receive Date: 20200217
  Receipt Date: 20200217
  Transmission Date: 20200409
  Serious: Yes (Other)
  Sender: FDA-Public Use
  Company Number: FR-MYLANLABS-2020M1015867

PATIENT
  Age: 24 Year
  Sex: Female
  Weight: 46 kg

DRUGS (6)
  1. PREDNISONE. [Suspect]
     Active Substance: PREDNISONE
     Indication: DRUG REACTION WITH EOSINOPHILIA AND SYSTEMIC SYMPTOMS
     Dosage: 45 MILLIGRAM, QD
     Route: 048
     Dates: start: 20190809
  2. CORTANCYL [Suspect]
     Active Substance: PREDNISONE
     Indication: DRUG REACTION WITH EOSINOPHILIA AND SYSTEMIC SYMPTOMS
     Dosage: 50 MILLIGRAM, QD
     Route: 048
     Dates: start: 20190723, end: 20190808
  3. METHYLPREDNISOLONE MYLAN [Suspect]
     Active Substance: METHYLPREDNISOLONE
     Indication: DRUG REACTION WITH EOSINOPHILIA AND SYSTEMIC SYMPTOMS
     Dosage: 500 MILLIGRAM, QD
     Route: 042
     Dates: start: 20190725, end: 20190727
  4. BETAMETHASONE. [Suspect]
     Active Substance: BETAMETHASONE
     Indication: DRUG REACTION WITH EOSINOPHILIA AND SYSTEMIC SYMPTOMS
     Dosage: UNK
     Route: 003
     Dates: start: 20190809
  5. CLARELUX [Suspect]
     Active Substance: CLOBETASOL PROPIONATE
     Indication: DRUG REACTION WITH EOSINOPHILIA AND SYSTEMIC SYMPTOMS
     Dosage: UNK
     Route: 003
     Dates: start: 20190726, end: 20190731
  6. BETNEVAL [Suspect]
     Active Substance: BETAMETHASONE VALERATE
     Indication: DRUG REACTION WITH EOSINOPHILIA AND SYSTEMIC SYMPTOMS
     Dosage: UNK
     Route: 003
     Dates: start: 20190723, end: 20190808

REACTIONS (2)
  - Hirsutism [Not Recovered/Not Resolved]
  - Steroid diabetes [Not Recovered/Not Resolved]

NARRATIVE: CASE EVENT DATE: 20180913
